FAERS Safety Report 18884401 (Version 1)
Quarter: 2021Q1

REPORT INFORMATION
  Report Type: Spontaneous
  Country: CN (occurrence: CN)
  Receive Date: 20210211
  Receipt Date: 20210211
  Transmission Date: 20210420
  Serious: Yes (Death, Other)
  Sender: FDA-Public Use
  Company Number: CN-SUN PHARMACEUTICAL INDUSTRIES LTD-2021R1-279793

PATIENT
  Age: 46 Year
  Sex: Female

DRUGS (3)
  1. CISPLATIN. [Suspect]
     Active Substance: CISPLATIN
     Indication: CHEMOTHERAPY
     Dosage: 75 MILLIGRAM/SQ. METER/ DAY 1
     Route: 042
  2. GEFITINIB. [Suspect]
     Active Substance: GEFITINIB
     Indication: CHEMOTHERAPY
     Dosage: 250 MILLIGRAM, DAILY
     Route: 065
  3. DOCETAXEL. [Suspect]
     Active Substance: DOCETAXEL
     Indication: CHEMOTHERAPY
     Dosage: 75 MILLIGRAM/SQ. METER/ DAY 1
     Route: 042

REACTIONS (2)
  - Alopecia [Unknown]
  - Neoplasm progression [Recovered/Resolved]
